FAERS Safety Report 9351263 (Version 1)
Quarter: 2013Q2

REPORT INFORMATION
  Report Type: Report from Study
  Country: GB (occurrence: GB)
  Receive Date: 20130617
  Receipt Date: 20130617
  Transmission Date: 20140414
  Serious: Yes (Hospitalization, Other)
  Sender: FDA-Public Use
  Company Number: PHHY2013GB059523

PATIENT
  Age: 16 Year
  Sex: Female

DRUGS (80)
  1. APREPITANT [Suspect]
     Indication: PROPHYLAXIS OF NAUSEA AND VOMITING
     Dosage: 125 MG, QD; DOSAGE FORM: CAPSULES, ON DAY ONE, 60 MINUTES PRIOR CHEMOTHERAPYCYCLE 1 SEQUENCE 1
     Route: 048
     Dates: start: 20120921, end: 20120921
  2. APREPITANT [Suspect]
     Dosage: 80 MG, QD; DOSAGE FORM: CAPSULES, ON MORNING OF DAY 2 AND DAY 3CYCLE 1 SEQUENCE 2
     Route: 048
     Dates: start: 20120922, end: 20120922
  3. APREPITANT [Suspect]
     Dosage: 80 MG, QD; DOSAGE FORM: CAPSULES, CYCLE 1 SEQUENCE 3
     Route: 048
     Dates: start: 20120923, end: 20120923
  4. APREPITANT [Suspect]
     Dosage: 80 MG, QD; DOSAGE FORM: CAPSULES, CYCLE 1 SEQUENCE 1
     Route: 048
     Dates: start: 20121017, end: 20121017
  5. APREPITANT [Suspect]
     Dosage: 80 MG, QD; DOSAGE FORM: CAPSULES, CYCLE 2 SEQUENCE 1
     Route: 048
     Dates: start: 20121018, end: 20121018
  6. APREPITANT [Suspect]
     Dosage: 80 MG, QD; DOSAGE FORM: CAPSULES, CYCLE 2 SEQUENCE 1
     Route: 048
     Dates: start: 20121019, end: 20121019
  7. APREPITANT [Suspect]
     Dosage: 125 MG, QD; DOSAGE FORM: CAPSULES, CYCLE 3 SEQUENCE 1
     Route: 048
     Dates: start: 20121107, end: 20121107
  8. APREPITANT [Suspect]
     Dosage: 80 MG, QD; DOSAGE FORM: CAPSULES, CYCLE 3 SEQUENCE 2
     Route: 048
     Dates: start: 20121108, end: 20121108
  9. APREPITANT [Suspect]
     Dosage: 80 MG, QD; DOSAGE FORM: CAPSULES, CYCLE 2 SEQUENCE 1
     Route: 048
     Dates: start: 20121109, end: 20121109
  10. APREPITANT [Suspect]
     Dosage: 125 MG, QD; DOSAGE FORM: CAPSULES, CYCLE 4 SEQUENCE 1
     Route: 048
     Dates: start: 20121128, end: 20121128
  11. APREPITANT [Suspect]
     Dosage: 80 MG, QD; DOSAGE FORM: CAPSULES, CYCLE 4 SEQUENCE 1
     Route: 048
     Dates: start: 20121129, end: 20121129
  12. APREPITANT [Suspect]
     Dosage: 125 MG, QD
     Route: 048
     Dates: start: 20121219
  13. APREPITANT [Suspect]
     Dosage: 80 MG, UNK
     Route: 048
     Dates: start: 20121220
  14. APREPITANT [Suspect]
     Dosage: 80 MG, UNK
     Route: 048
     Dates: start: 20121221
  15. APREPITANT [Suspect]
     Dosage: 80 MG, UNK
     Route: 048
     Dates: start: 20121222
  16. ONDANSETRON [Suspect]
     Indication: PROPHYLAXIS OF NAUSEA AND VOMITING
     Dosage: 7 MG, QD
     Route: 042
     Dates: start: 20120921, end: 20120924
  17. ONDANSETRON [Suspect]
     Dosage: 8 MG, UNK
     Route: 042
     Dates: start: 20120924, end: 20120924
  18. ONDANSETRON [Suspect]
     Dosage: 8 MG, QD
     Route: 042
     Dates: start: 20121007, end: 20121007
  19. ONDANSETRON [Suspect]
     Dosage: 8 MG, UNK
     Route: 042
     Dates: start: 20121219
  20. ONDANSETRON [Suspect]
     Dosage: 8 MG, UNK
     Route: 042
     Dates: start: 20121220
  21. ONDANSETRON [Suspect]
     Dosage: 8 MG, UNK
     Route: 042
     Dates: start: 20121221
  22. ONDANSETRON [Suspect]
     Indication: PROPHYLAXIS OF NAUSEA AND VOMITING
     Dosage: 8 MG, QD
     Route: 048
     Dates: start: 20120924
  23. ONDANSETRON [Suspect]
     Dosage: 8 MG, BID
     Route: 048
     Dates: start: 20120925
  24. ONDANSETRON [Suspect]
     Dosage: 8 MG, QD
     Route: 048
     Dates: start: 20120926, end: 20120927
  25. ONDANSETRON [Suspect]
     Dosage: 8 MG, QD
     Route: 048
     Dates: start: 20120927, end: 20120927
  26. ONDANSETRON [Suspect]
     Dosage: 8 MG, QD; TABLET, CYCLE 2 SEQUENCE 1
     Route: 048
     Dates: start: 20121017, end: 20121017
  27. ONDANSETRON [Suspect]
     Dosage: 8 MG, QD; CYCLE 2 SEQUENCE 1
     Route: 048
     Dates: start: 20121018, end: 20121018
  28. ONDANSETRON [Suspect]
     Dosage: 8 MG, QD; TABLET, CYCLE 2 SEQUENCE 1
     Route: 048
     Dates: start: 20121019, end: 20121019
  29. DEXAMETHASONE [Suspect]
     Indication: PROPHYLAXIS OF NAUSEA AND VOMITING
     Dosage: 10 ML, QD
     Route: 042
     Dates: start: 20120921, end: 20120921
  30. DEXAMETHASONE [Suspect]
     Dosage: 10 ML, QD
     Route: 042
     Dates: start: 20120922, end: 20120922
  31. DEXAMETHASONE [Suspect]
     Dosage: 10 ML, QD
     Route: 042
     Dates: start: 20120923, end: 20120923
  32. DEXAMETHASONE [Suspect]
     Dosage: 10 ML, QD
     Route: 042
     Dates: start: 20120924, end: 20120924
  33. IFOSFAMIDE [Suspect]
     Indication: NEOPLASM MALIGNANT
     Dosage: 4200 MG, QD
     Route: 042
     Dates: start: 20120921, end: 20120923
  34. IFOSFAMIDE [Suspect]
     Dosage: 4200 MG, QD
     Route: 042
     Dates: start: 20121017, end: 20121019
  35. IFOSFAMIDE [Suspect]
     Dosage: 4200 MG, QD
     Dates: start: 20121107
  36. IFOSFAMIDE [Suspect]
     Dates: start: 20121109
  37. IFOSFAMIDE [Suspect]
     Dosage: 3900 MG, QD
     Dates: start: 20121128
  38. DOXORUBICIN [Suspect]
     Indication: CHEMOTHERAPY
     Dosage: 52 MG, QD
     Route: 042
     Dates: start: 20120922, end: 20120923
  39. DOXORUBICIN [Suspect]
     Dosage: 52 MG, QD
     Route: 042
     Dates: start: 20121017, end: 20121018
  40. DOXORUBICIN [Suspect]
     Dosage: 53 MG, BID
     Dates: start: 20121108, end: 20121108
  41. DOXORUBICIN [Suspect]
     Dosage: 49 MG, QD
     Dates: start: 20121128
  42. PLACEBO [Suspect]
     Indication: PROPHYLAXIS OF NAUSEA AND VOMITING
     Dosage: 125 MG, QD; 125 MG, QD; DOSAGE FORM: CAPSULES, ON DAY ONE, 60 MINUTES PRIOR CHEMOTHERAPYCYCLE 1 SEQU
     Route: 048
     Dates: start: 20120921, end: 20120921
  43. PLACEBO [Suspect]
     Dosage: 80 MG, QD; 80 MG, QD; DOSAGE FORM: CAPSULES, ON MORNING OF DAY 2 AND DAY 3CYCLE 1 SEQUENCE 2
     Route: 048
     Dates: start: 20120922, end: 20120922
  44. PLACEBO [Suspect]
     Dosage: 80 MG, QD; 80 MG, QD; DOSAGE FORM: CAPSULES, CYCLE 1 SEQUENCE 3
     Route: 048
     Dates: start: 20120923, end: 20120923
  45. PLACEBO [Suspect]
     Dosage: 80 MG, QD; 80 MG, QD; DOSAGE FORM: CAPSULES, CYCLE 2 SEQUENCE 1
     Route: 048
     Dates: start: 20120923, end: 20120923
  46. PLACEBO [Suspect]
     Dosage: 80 MG, QD; 80 MG, QD, DOSAGE FORM: CAPSULES, CYCLE 1 SEQUENCE 1
     Route: 048
     Dates: start: 20121017, end: 20121017
  47. PLACEBO [Suspect]
     Dosage: 80 MG, QD; 80 MG, QD; DOSAGE FORM: CAPSULES, CYCLE 2 SEQUENCE 1
     Route: 048
     Dates: start: 20121019, end: 20121019
  48. PLACEBO [Suspect]
     Dosage: 125 MG, QD; 125 MG, QD; DOSAGE FORM: CAPSULES, CYCLE 3 SEQUENCE 1
     Route: 048
     Dates: start: 20121107, end: 20121107
  49. PLACEBO [Suspect]
     Dosage: 80 MG, QD; 80 MG, QD; DOSAGE FORM: CAPSULES, CYCLE 2 SEQUENCE 1
     Route: 048
     Dates: start: 20121018, end: 20121018
  50. PLACEBO [Suspect]
     Dosage: 80 MG, QD; 80 MG, QD; DOSAGE FORM: CAPSULES, CYCLE 3 SEQUENCE 2
     Route: 048
     Dates: start: 20121108, end: 20121108
  51. PLACEBO [Suspect]
     Dosage: 80 MG, QD; 80 MG, QD; DOSAGE FORM: CAPSULES, CYCLE 2 SEQUENCE 1
     Route: 048
     Dates: start: 20121109, end: 20121109
  52. PLACEBO [Suspect]
     Dosage: 125 MG, QD; 125 MG, QD; DOSAGE FORM: CAPSULES, CYCLE 4 SEQUENCE 1
     Route: 048
     Dates: start: 20121128, end: 20121128
  53. PLACEBO [Suspect]
     Dosage: 80 MG, QD; 80 MG, QD; DOSAGE FORM: CAPSULES, CYCLE 4 SEQUENCE 1
     Route: 048
     Dates: start: 20121129, end: 20121129
  54. NORETHINDRONE [Concomitant]
     Indication: MENSTRUAL DISORDER
     Dosage: 5 MG, TID
     Route: 048
     Dates: start: 20120903
  55. CODEINE PHOSPHATE [Concomitant]
     Indication: ANALGESIC THERAPY
     Dosage: 30 MG, QID
     Route: 048
     Dates: start: 20120830
  56. CODEINE PHOSPHATE [Concomitant]
     Dosage: 60 MG, QD
     Route: 048
     Dates: start: 20121005, end: 20121005
  57. MACROGOL [Concomitant]
     Indication: CONSTIPATION
     Route: 048
     Dates: start: 20120830, end: 201209
  58. HEPARIN [Concomitant]
     Indication: ANTICOAGULANT THERAPY
     Route: 042
     Dates: start: 20120914
  59. HEPARIN [Concomitant]
     Dosage: 5 ML, QD
     Route: 042
     Dates: start: 20120914
  60. MESNA [Concomitant]
     Indication: PROPHYLAXIS
     Route: 042
     Dates: start: 20121017, end: 20121019
  61. MESNA [Concomitant]
     Dosage: 5040 MG, QD
     Route: 042
     Dates: start: 20120921, end: 20120924
  62. MESNA [Concomitant]
     Dates: start: 20121017, end: 20121019
  63. CYCLIZINE [Concomitant]
     Indication: ANTIEMETIC SUPPORTIVE CARE
     Dosage: 50 MG, QD
     Route: 048
     Dates: start: 20121017, end: 20121017
  64. CYCLIZINE [Concomitant]
     Dosage: 50 MG, TID
     Route: 048
     Dates: start: 20120923, end: 20120923
  65. BOVINE COLOSTRUM [Concomitant]
     Dates: start: 201209
  66. CODEINE [Concomitant]
     Indication: ANALGESIC THERAPY
     Dosage: 60 MG, QD
     Route: 048
     Dates: start: 20121005, end: 20121005
  67. CO-AMOXICLAV [Concomitant]
     Indication: MUCOSAL INFLAMMATION
     Dosage: 375 MG, TID
     Route: 048
     Dates: start: 20121030, end: 201211
  68. CO-AMOXICLAV [Concomitant]
     Indication: INFECTION
     Dosage: 375 MG, TID
     Route: 048
     Dates: start: 20121030, end: 201211
  69. PARACETAMOL [Concomitant]
     Indication: ANALGESIC THERAPY
     Dosage: 750 MG, QD
     Route: 048
     Dates: start: 20121005, end: 20121006
  70. CIPROFLOXACIN [Concomitant]
     Indication: MUCOSAL INFLAMMATION
     Dosage: 750 MG, TID
     Route: 048
     Dates: start: 20121030, end: 201211
  71. CIPROFLOXACIN [Concomitant]
     Indication: INFECTION
     Dosage: 750 MG, TID
     Route: 048
     Dates: start: 20121030, end: 201211
  72. FENTANYL [Concomitant]
     Indication: PAIN
     Dates: start: 20121030
  73. OXYCODONE [Concomitant]
     Indication: PAIN
     Route: 042
     Dates: start: 20121030, end: 20121030
  74. OXYCODONE [Concomitant]
     Dosage: 10 MG, BID
     Route: 048
     Dates: start: 20121122, end: 20121201
  75. BUSCOPAN [Concomitant]
     Dates: start: 20121005, end: 20121008
  76. CALCIUM CARBONATE [Concomitant]
     Dates: start: 20121005, end: 20121009
  77. HYPROMELLOSE [Concomitant]
     Route: 047
     Dates: start: 20121019
  78. TEICOPLANIN [Concomitant]
     Indication: DEVICE RELATED INFECTION
     Dosage: 400 MG, QD
     Route: 042
     Dates: start: 20120915, end: 20120920
  79. RED BLOOD CELLS [Concomitant]
     Indication: HAEMOGLOBIN DECREASED
     Dosage: 2 DF, UNK
     Route: 042
     Dates: start: 20120924, end: 20120924
  80. ANAESTHETIC [Concomitant]
     Indication: ANAESTHESIA
     Route: 061
     Dates: start: 20121006, end: 20121016

REACTIONS (11)
  - Medical device complication [Recovered/Resolved]
  - Abdominal pain [Recovered/Resolved]
  - Mucosal inflammation [Recovered/Resolved]
  - Off label use [Unknown]
  - Periorbital cellulitis [Recovered/Resolved]
  - Febrile neutropenia [Recovered/Resolved]
  - Vena cava thrombosis [Not Recovered/Not Resolved]
  - Medical device complication [Unknown]
  - Constipation [Recovered/Resolved]
  - Haemoglobin decreased [Not Recovered/Not Resolved]
  - Diarrhoea [Recovered/Resolved]
